FAERS Safety Report 8880053 (Version 2)
Quarter: 2012Q4

REPORT INFORMATION
  Report Type: Report from Study
  Country: US (occurrence: US)
  Receive Date: 20121031
  Receipt Date: 20121115
  Transmission Date: 20130627
  Serious: No
  Sender: FDA-Public Use
  Company Number: US-VERTEX PHARMACEUTICAL INC.-2012-023685

PATIENT
  Age: 16 Year
  Sex: Female
  Weight: 60.1 kg

DRUGS (14)
  1. VX-770 [Suspect]
     Indication: CYSTIC FIBROSIS
     Dosage: 150 mg, bid
     Route: 048
     Dates: start: 20120503
  2. PRILOSEC                           /00661201/ [Concomitant]
  3. CREON [Concomitant]
  4. NOVOLOG [Concomitant]
  5. VITAMIN D3 [Concomitant]
  6. BIRTH CONTROL [Concomitant]
  7. LANTUS [Concomitant]
  8. ALBUTEROL                          /00139501/ [Concomitant]
  9. PULMOZYME [Concomitant]
  10. FLUTICASONE [Concomitant]
  11. BENADRYL                           /00000402/ [Concomitant]
  12. ZYRTEC [Concomitant]
  13. ADVAIR [Concomitant]
  14. AZITHROMYCIN [Concomitant]

REACTIONS (1)
  - Infective pulmonary exacerbation of cystic fibrosis [Not Recovered/Not Resolved]
